FAERS Safety Report 12602917 (Version 3)
Quarter: 2016Q4

REPORT INFORMATION
  Report Type: Spontaneous
  Country: BR (occurrence: BR)
  Receive Date: 20160728
  Receipt Date: 20161122
  Transmission Date: 20170207
  Serious: Yes (Hospitalization, Other)
  Sender: FDA-Public Use
  Company Number: BR-PFIZER INC-2016342105

PATIENT
  Age: 43 Year
  Sex: Female

DRUGS (6)
  1. FRONTAL XR [Suspect]
     Active Substance: ALPRAZOLAM
     Dosage: 1 MG (2 TABLETS OF 0.5 MG) PER DAY
     Route: 048
     Dates: start: 201505
  2. BROMOPRIDE [Concomitant]
     Active Substance: BROMOPRIDE
     Dosage: UNK
     Dates: start: 2013
  3. FRONTAL XR [Suspect]
     Active Substance: ALPRAZOLAM
     Indication: PANIC DISORDER
     Dosage: 3 MG (3 TABLETS OF 1 MG), UNK
     Route: 048
     Dates: start: 2007
  4. QUETIAPINE. [Concomitant]
     Active Substance: QUETIAPINE
     Dosage: UNK
     Dates: start: 2008
  5. ANCORON [Concomitant]
     Active Substance: AMIODARONE HYDROCHLORIDE
     Dosage: UNK
     Dates: start: 201505
  6. CARVEDILOL. [Concomitant]
     Active Substance: CARVEDILOL
     Indication: TACHYCARDIA
     Dosage: UNK
     Dates: start: 2007

REACTIONS (9)
  - Drug dependence [Not Recovered/Not Resolved]
  - Diabetes mellitus [Recovering/Resolving]
  - Sleep disorder [Recovered/Resolved]
  - Emotional distress [Recovered/Resolved]
  - Hypertension [Recovering/Resolving]
  - Tremor [Recovered/Resolved]
  - Feeling of despair [Recovered/Resolved]
  - Tachycardia [Recovered/Resolved]
  - Withdrawal syndrome [Recovered/Resolved]

NARRATIVE: CASE EVENT DATE: 2008
